FAERS Safety Report 4788921-1 (Version None)
Quarter: 2005Q4

REPORT INFORMATION
  Report Type: 
  Country: None (occurrence: None)
  Receive Date: 20051004
  Receipt Date: 20050527
  Transmission Date: 20060501
  Serious: Yes (Hospitalization)
  Sender: FDA-Public Use
  Company Number: 6015329

PATIENT
  Sex: Female

DRUGS (3)
  1. MOBILIS (TABLET) [Suspect]
     Indication: ARTHRITIS
     Dosage: 60 MG WEEKLY, ORAL
     Route: 048
     Dates: start: 20050112
  2. ACIMAX (TABLET) (OMEPRAZOLE) [Concomitant]
  3. ATACAND [Concomitant]

REACTIONS (2)
  - GASTROINTESTINAL HAEMORRHAGE [None]
  - HAEMOGLOBIN DECREASED [None]
